FAERS Safety Report 6846358-5 (Version None)
Quarter: 2010Q3

REPORT INFORMATION
  Report Type: 
  Country: None (occurrence: None)
  Receive Date: 20100715
  Receipt Date: 20070918
  Transmission Date: 20110219
  Serious: No
  Sender: FDA-Public Use
  Company Number: US-PFIZER INC-2007078236

PATIENT
  Sex: Male
  Weight: 72.727 kg

DRUGS (2)
  1. CHANTIX [Suspect]
     Indication: SMOKING CESSATION THERAPY
     Dates: start: 20070316, end: 20070404
  2. ACETYLSALICYLIC ACID [Concomitant]

REACTIONS (1)
  - AGEUSIA [None]
